FAERS Safety Report 6012331-2 (Version None)
Quarter: 2008Q4

REPORT INFORMATION
  Report Type: 
  Country: None (occurrence: None)
  Receive Date: 20081218
  Receipt Date: 20080903
  Transmission Date: 20090506
  Serious: No
  Sender: FDA-Public Use
  Company Number: US-ASTRAZENECA-2008UW15717

PATIENT
  Sex: Female

DRUGS (1)
  1. SYMBICORT [Suspect]
     Indication: ASTHMA
     Dosage: 80/4.5 UG 1 PUFF TWICE A DAY
     Route: 055
     Dates: start: 20070101

REACTIONS (3)
  - DYSPHONIA [None]
  - SKIN DISCOLOURATION [None]
  - SKIN EXFOLIATION [None]
